FAERS Safety Report 4771091-3 (Version None)
Quarter: 2005Q3

REPORT INFORMATION
  Report Type: 
  Country: None (occurrence: None)
  Receive Date: 20050914
  Receipt Date: 20050901
  Transmission Date: 20060218
  Serious: Yes (Other)
  Sender: FDA-Public Use
  Company Number: 2005113858

PATIENT
  Age: 81 Year
  Sex: Female
  Weight: 56.6996 kg

DRUGS (14)
  1. DETROL LA [Suspect]
     Indication: HYPERTONIC BLADDER
     Dosage: 4 MG (4 MG, 1 IN 1 D), ORAL
     Route: 048
     Dates: start: 20050606
  2. ALL OTHER THERAPEUTIC PRODUCTS (ALL OTHER THERAPEUTIC PRODUCTS) [Suspect]
     Indication: HYPERTONIC BLADDER
     Dates: start: 20050611, end: 20050612
  3. ACIPHEX [Concomitant]
  4. ACTONEL [Concomitant]
  5. INDOCIN [Concomitant]
  6. EFFEXOR [Concomitant]
  7. COLACE (DOCUSATE SODIUM) [Concomitant]
  8. METAMUCIL ^PROCTER + GAMBLE^ (FLUCOSE MONOHYDRATE, ISPAGULA HUSK) [Concomitant]
  9. ACCOLATE [Concomitant]
  10. PLAQUENIL [Concomitant]
  11. VITAMIN D [Concomitant]
  12. COMBIVENT [Concomitant]
  13. TEAR DROP (POLYVINYL ALCOHOL) [Concomitant]
  14. ALL OTHER THERAPEUTIC PRODUCTS (ALL OTHER THERAPEUTIC PRODUCTS) [Concomitant]

REACTIONS (3)
  - BLINDNESS [None]
  - BLINDNESS TRANSIENT [None]
  - MACULAR DEGENERATION [None]
